FAERS Safety Report 6858849-1 (Version None)
Quarter: 2010Q3

REPORT INFORMATION
  Report Type: 
  Country: None (occurrence: None)
  Receive Date: 20100719
  Receipt Date: 20080402
  Transmission Date: 20110219
  Serious: No
  Sender: FDA-Public Use
  Company Number: US-PFIZER INC-2008015393

PATIENT
  Sex: Female
  Weight: 52.7 kg

DRUGS (5)
  1. CHANTIX [Suspect]
     Indication: SMOKING CESSATION THERAPY
     Dates: start: 20080128
  2. XANAX [Suspect]
     Indication: ANXIETY
  3. LEVOTHYROXINE SODIUM [Concomitant]
     Indication: HYPOTHYROIDISM
  4. PERCOCET [Concomitant]
  5. DOXYCYCLINE [Concomitant]
     Indication: ACNE

REACTIONS (3)
  - ANXIETY [None]
  - NAUSEA [None]
  - VOMITING [None]
